FAERS Safety Report 5448901-X (Version None)
Quarter: 2007Q3

REPORT INFORMATION
  Report Type: 
  Country: None (occurrence: None)
  Receive Date: 20070906
  Receipt Date: 20070824
  Transmission Date: 20080115
  Serious: Yes (Other)
  Sender: FDA-Public Use
  Company Number: CERZ-11845

PATIENT
  Sex: Male
  Weight: 8.6 kg

DRUGS (1)
  1. CEREZYME [Suspect]
     Indication: GAUCHER'S DISEASE
     Dosage: 120 U/KG Q2WKS IV
     Route: 042
     Dates: start: 20060831

REACTIONS (3)
  - BRONCHITIS [None]
  - RESPIRATORY ARREST [None]
  - RESPIRATORY DISTRESS [None]
